FAERS Safety Report 5205460-4 (Version None)
Quarter: 2006Q4

REPORT INFORMATION
  Report Type: 
  Country: None (occurrence: None)
  Receive Date: 20061027
  Receipt Date: 20050913
  Transmission Date: 20070319
  Serious: Yes (Other)
  Sender: FDA-Public Use
  Company Number: HQWYE026214APR05

PATIENT
  Age: 64 Year
  Sex: Female
  Weight: 85.5 kg

DRUGS (6)
  1. PREMARIN [Suspect]
     Indication: MENOPAUSAL SYMPTOMS
     Dosage: 0.625MG FREQUENCY NOT SPECIFIED, ORAL
     Route: 048
     Dates: start: 19850101, end: 19970101
  2. PREMPRO [Suspect]
     Dosage: UNKNOWN, ORAL
     Route: 048
     Dates: start: 19970101
  3. PROVERA [Suspect]
     Indication: MENOPAUSAL SYMPTOMS
     Dosage: 2.5MG FREQUENCY NOT SPECIFIED, ORAL
     Route: 048
     Dates: start: 19850101, end: 19970101
  4. SYNTHROID [Concomitant]
  5. METOPROLOL SUCCINATE [Concomitant]
  6. CALCIUM [Concomitant]

REACTIONS (1)
  - BREAST CANCER [None]
